FAERS Safety Report 13594703 (Version 1)
Quarter: 2017Q2

REPORT INFORMATION
  Report Type: Spontaneous
  Country: AT (occurrence: AT)
  Receive Date: 20170530
  Receipt Date: 20170530
  Transmission Date: 20170830
  Serious: Yes (Other)
  Sender: FDA-Public Use
  Company Number: AT-DSJP-DSE-2017-116087

PATIENT

DRUGS (2)
  1. LIXIANA [Suspect]
     Active Substance: EDOXABAN TOSYLATE
     Indication: ATRIAL FIBRILLATION
  2. LIXIANA [Suspect]
     Active Substance: EDOXABAN TOSYLATE
     Indication: PROPHYLAXIS
     Dosage: 60 MG, QD
     Route: 048

REACTIONS (1)
  - Cerebrovascular accident [Unknown]
